FAERS Safety Report 11857601 (Version 1)
Quarter: 2015Q4

REPORT INFORMATION
  Report Type: Spontaneous
  Country: US (occurrence: None)
  Receive Date: 20151221
  Receipt Date: 20151221
  Transmission Date: 20160305
  Serious: Yes (Other)
  Sender: FDA-Public Use
  Company Number: None

PATIENT
  Age: 79 Year
  Sex: Female

DRUGS (20)
  1. COUMADIN [Concomitant]
     Active Substance: WARFARIN SODIUM
  2. NITROFUANTIN [Concomitant]
  3. TRAZODONE [Concomitant]
     Active Substance: TRAZODONE HYDROCHLORIDE
  4. ENBREL [Suspect]
     Active Substance: ETANERCEPT
     Indication: RHEUMATOID ARTHRITIS
     Route: 058
     Dates: start: 20080408
  5. POT CL MICRO TAB [Concomitant]
  6. PROTONIX [Concomitant]
     Active Substance: PANTOPRAZOLE SODIUM
  7. ASPIRIN. [Concomitant]
     Active Substance: ASPIRIN
  8. STOOL SOFTENER [Concomitant]
     Active Substance: DOCUSATE CALCIUM
  9. MORPHINE [Concomitant]
     Active Substance: MORPHINE
  10. PAXIL [Concomitant]
     Active Substance: PAROXETINE HYDROCHLORIDE
  11. AMLODIPINE [Concomitant]
     Active Substance: AMLODIPINE BESYLATE
  12. IRON [Concomitant]
     Active Substance: IRON
  13. PAROXETINE [Concomitant]
     Active Substance: PAROXETINE\PAROXETINE HYDROCHLORIDE
  14. CALCIUM [Concomitant]
     Active Substance: CALCIUM
  15. HCTZ [Concomitant]
     Active Substance: HYDROCHLOROTHIAZIDE
  16. ACIDOPHILUS [Concomitant]
     Active Substance: LACTOBACILLUS ACIDOPHILUS
  17. FOLIC ACID. [Concomitant]
     Active Substance: FOLIC ACID
  18. GABAPENTIN. [Concomitant]
     Active Substance: GABAPENTIN
  19. METHOTREXATE [Concomitant]
     Active Substance: METHOTREXATE
  20. METOPOLOL TAR [Concomitant]
     Active Substance: METOPROLOL TARTRATE

REACTIONS (2)
  - Urinary retention [None]
  - Nephrolithiasis [None]

NARRATIVE: CASE EVENT DATE: 201512
